FAERS Safety Report 19361657 (Version 2)
Quarter: 2021Q3

REPORT INFORMATION
  Report Type: Spontaneous
  Country: JP (occurrence: JP)
  Receive Date: 20210603
  Receipt Date: 20210818
  Transmission Date: 20211014
  Serious: Yes (Other)
  Sender: FDA-Public Use
  Company Number: JP-ASTRAZENECA-2021A476359

PATIENT
  Age: 83 Year
  Sex: Female
  Weight: 48 kg

DRUGS (7)
  1. VALSARTAN. [Concomitant]
     Active Substance: VALSARTAN
     Dosage: DOSE UNKNOWN
     Route: 048
  2. FML [Concomitant]
     Active Substance: FLUOROMETHOLONE
     Dosage: DOSE UNKNOWN
     Route: 047
  3. LEVOFLOXACIN HEMIHYDRATE [Concomitant]
     Active Substance: LEVOFLOXACIN
     Dosage: DOSE UNKNOWN
     Route: 047
  4. PIRENOXINE [Concomitant]
     Active Substance: PIRENOXINE
     Dosage: DOSE UNKNOWN
     Route: 047
  5. LIMAPROST ALFADEX [Concomitant]
     Active Substance: LIMAPROST
     Dosage: DOSE UNKNOWN
     Route: 048
  6. DOMPERIDONE [Concomitant]
     Active Substance: DOMPERIDONE
     Dosage: DOSE UNKNOWN
     Route: 048
  7. TAGRISSO [Suspect]
     Active Substance: OSIMERTINIB
     Indication: NON-SMALL CELL LUNG CANCER
     Route: 048
     Dates: start: 20210225, end: 20210420

REACTIONS (2)
  - Pneumothorax [Unknown]
  - Interstitial lung disease [Recovering/Resolving]

NARRATIVE: CASE EVENT DATE: 20210420
